FAERS Safety Report 13517435 (Version 1)
Quarter: 2017Q2

REPORT INFORMATION
  Report Type: Spontaneous
  Country: US (occurrence: US)
  Receive Date: 20170505
  Receipt Date: 20170505
  Transmission Date: 20170830
  Serious: Yes (Life-Threatening, Hospitalization)
  Sender: FDA-Public Use
  Company Number: None

PATIENT
  Age: 71 Year
  Sex: Male
  Weight: 78.2 kg

DRUGS (3)
  1. LITHIUM. [Suspect]
     Active Substance: LITHIUM
     Indication: BIPOLAR I DISORDER
     Dosage: MG BID PO
     Route: 048
     Dates: start: 20160120, end: 20160130
  2. LITHIUM. [Suspect]
     Active Substance: LITHIUM
     Indication: MANIA
     Dosage: MG BID PO
     Route: 048
     Dates: start: 20160120, end: 20160130
  3. LITHIUM. [Suspect]
     Active Substance: LITHIUM
     Dosage: MG BID PO
     Route: 048
     Dates: start: 20160120, end: 20160130

REACTIONS (7)
  - Dizziness [None]
  - Acute kidney injury [None]
  - Agitation [None]
  - Confusional state [None]
  - Sedation [None]
  - Diarrhoea [None]
  - Headache [None]

NARRATIVE: CASE EVENT DATE: 20160130
